FAERS Safety Report 5939626-2 (Version None)
Quarter: 2008Q4

REPORT INFORMATION
  Report Type: 
  Country: None (occurrence: None)
  Receive Date: 20081104
  Receipt Date: 20081029
  Transmission Date: 20090506
  Serious: Yes (Death, Hospitalization)
  Sender: FDA-Public Use
  Company Number: GB-RANBAXY-2008RR-19018

PATIENT
  Age: 82 Year
  Sex: Female

DRUGS (3)
  1. IBUPROFEN TABLETS [Suspect]
     Indication: PAIN
     Dosage: 1200 MG, QD
     Route: 048
  2. IBUPROFEN TABLETS [Suspect]
  3. IBUPROFEN TABLETS [Suspect]
     Indication: INFLUENZA

REACTIONS (11)
  - ABDOMINAL TENDERNESS [None]
  - ANAEMIA [None]
  - DUODENITIS HAEMORRHAGIC [None]
  - FAECES DISCOLOURED [None]
  - GASTRITIS [None]
  - HAEMOGLOBIN DECREASED [None]
  - MELAENA [None]
  - NAUSEA [None]
  - SHOCK [None]
  - SMALL INTESTINAL HAEMORRHAGE [None]
  - VOMITING [None]
